FAERS Safety Report 5509076-1 (Version None)
Quarter: 2007Q4

REPORT INFORMATION
  Report Type: 
  Country: None (occurrence: None)
  Receive Date: 20071026
  Receipt Date: 20070808
  Transmission Date: 20080405
  Serious: Yes (Hospitalization)
  Sender: FDA-Public Use
  Company Number: CLOF-10634

PATIENT
  Age: 46 Year
  Sex: Female

DRUGS (18)
  1. CLOFARABINE. MFR: GENZYME [Suspect]
     Indication: ACUTE MYELOID LEUKAEMIA
     Dosage: 22.5 MG/M2 QD X 5 IV
     Route: 042
     Dates: start: 20070724, end: 20070728
  2. IDARUBICIN HCL [Suspect]
     Indication: ACUTE MYELOID LEUKAEMIA
     Dosage: 6 MG/M2 QD X 3 IV
     Route: 042
     Dates: start: 20070723, end: 20070725
  3. CYTARABINE [Suspect]
     Indication: ACUTE MYELOID LEUKAEMIA
     Dosage: 750 MG/M2 QD X 5 IV
     Route: 042
     Dates: start: 20070723, end: 20070727
  4. COMPAZINE [Concomitant]
  5. DARVON [Concomitant]
  6. FAMOTIDINE [Concomitant]
  7. LEVAQUIN [Concomitant]
  8. SYNTHROID [Concomitant]
  9. PAXIL [Concomitant]
  10. PERIOGARD [Concomitant]
  11. RESTORIL [Concomitant]
  12. VALTREX [Concomitant]
  13. VORICONAZOLE [Concomitant]
  14. WELLBUTRIN [Concomitant]
  15. XANAX [Concomitant]
  16. XYLOXYLIN [Concomitant]
  17. YAZ [Concomitant]
  18. TRIAMCINOLONE [Concomitant]

REACTIONS (1)
  - MUCOSAL INFLAMMATION [None]
